FAERS Safety Report 18184101 (Version 3)
Quarter: 2020Q4

REPORT INFORMATION
  Report Type: Report from Study
  Country: None (occurrence: US)
  Receive Date: 20200823
  Receipt Date: 20201006
  Transmission Date: 20210113
  Serious: Yes (Hospitalization, Other)
  Sender: FDA-Public Use
  Company Number: US-ABBVIE-20K-163-3534225-00

PATIENT
  Sex: Male

DRUGS (1)
  1. HUMIRA [Suspect]
     Active Substance: ADALIMUMAB
     Indication: CROHN^S DISEASE
     Route: 058

REACTIONS (6)
  - Haemoglobin abnormal [Unknown]
  - Blood potassium abnormal [Unknown]
  - Pancreatic cyst [Unknown]
  - Inflammation [Recovering/Resolving]
  - Blood magnesium decreased [Unknown]
  - Cataract [Unknown]
